FAERS Safety Report 9668725 (Version 1)
Quarter: 2013Q4

REPORT INFORMATION
  Report Type: Spontaneous
  Country: US (occurrence: None)
  Receive Date: 20131104
  Receipt Date: 20131104
  Transmission Date: 20140711
  Serious: Yes (Life-Threatening)
  Sender: FDA-Public Use
  Company Number: None

PATIENT
  Sex: Female

DRUGS (2)
  1. LAMICTAL XR 200MG [Suspect]
     Indication: CONVULSION
     Dosage: 2 TABS, QD, PO LIFE LONG
     Route: 048
  2. LAMICTAL XR 200MG [Suspect]
     Indication: EPILEPSY
     Dosage: 2 TABS, QD, PO LIFE LONG
     Route: 048

REACTIONS (3)
  - Product substitution issue [None]
  - Therapeutic response unexpected with drug substitution [None]
  - Convulsion [None]
